FAERS Safety Report 6643588-2 (Version None)
Quarter: 2010Q1

REPORT INFORMATION
  Report Type: 
  Country: None (occurrence: None)
  Receive Date: 20100320
  Receipt Date: 20100309
  Transmission Date: 20100710
  Serious: No
  Sender: FDA-Public Use
  Company Number: US-JNJFOC-20100303190

PATIENT
  Sex: Female
  Weight: 54.43 kg

DRUGS (10)
  1. DURAGESIC-100 [Suspect]
     Indication: BACK PAIN
     Route: 062
  2. FENTANYL CITRATE [Suspect]
     Indication: BACK PAIN
     Route: 062
  3. FENTANYL CITRATE [Suspect]
     Indication: BACK PAIN
     Route: 062
  4. WATSON FENTANYL TRANSDERMAL SYSTEM [Suspect]
     Indication: BACK PAIN
     Route: 062
  5. CYMBALTA [Suspect]
     Indication: DEPRESSION
     Route: 048
  6. UNKNOWN MEDICATION [Concomitant]
     Indication: HYPERSENSITIVITY
     Route: 065
  7. ACID REFLUX MEDICATION [Concomitant]
     Indication: GASTROOESOPHAGEAL REFLUX DISEASE
     Route: 065
  8. PRISTIQ [Concomitant]
     Indication: DEPRESSION
     Route: 048
  9. ALPRAZOLAM [Concomitant]
     Indication: ANXIETY
     Route: 048
  10. VITAMIN TAB [Concomitant]
     Indication: VITAMIN SUPPLEMENTATION
     Route: 048

REACTIONS (7)
  - BACK PAIN [None]
  - DRUG EFFECT DECREASED [None]
  - PRODUCT ADHESION ISSUE [None]
  - PRODUCT QUALITY ISSUE [None]
  - SOMNOLENCE [None]
  - WEIGHT INCREASED [None]
  - WRONG TECHNIQUE IN DRUG USAGE PROCESS [None]
